FAERS Safety Report 24330722 (Version 1)
Quarter: 2024Q3

REPORT INFORMATION
  Report Type: Spontaneous
  Country: GB (occurrence: GB)
  Receive Date: 20240918
  Receipt Date: 20240918
  Transmission Date: 20241017
  Serious: Yes (Other)
  Sender: AUROBINDO
  Company Number: GB-MHRA-EMIS-8100-075b4412-0b7f-4230-801c-60e7259be04d

PATIENT
  Age: 36 Year
  Sex: Female
  Weight: 67 kg

DRUGS (6)
  1. TERBINAFINE [Suspect]
     Active Substance: TERBINAFINE
     Indication: Product used for unknown indication
     Dosage: 1 DOSAGE FORM, ONCE A DAY
     Route: 065
     Dates: start: 20240531, end: 20240727
  2. DOXYCYCLINE [Concomitant]
     Active Substance: DOXYCYCLINE\DOXYCYCLINE HYCLATE
     Indication: Localised infection
     Dosage: UNK (TWO TO BE TAKEN ON THE FIRST DAY THEN ONE TO BE TAKEN EACH DAY)
     Route: 065
     Dates: start: 20240531, end: 20240713
  3. CLOTRIMAZOLE\HYDROCORTISONE [Concomitant]
     Active Substance: CLOTRIMAZOLE\HYDROCORTISONE
     Indication: Product used for unknown indication
     Dosage: 30 GRAM (APPLY SPARINGLY BD TO AFFECTED AREAS FOR TWO WEEKS)
     Route: 065
     Dates: start: 20240628
  4. TERBINAFINE [Concomitant]
     Active Substance: TERBINAFINE
     Indication: Localised infection
     Dosage: 1 DOSAGE FORM, ONCE A DAY
     Route: 065
     Dates: start: 20240628
  5. AMOROLFINE [Concomitant]
     Active Substance: AMOROLFINE
     Indication: Localised infection
     Dosage: 5 MILLILITER (APPLY TO INFECTED NAILS 1 OR 2 TIMES WEEKLY AS DIRECTED)
     Route: 065
     Dates: start: 20240726
  6. ITRACONAZOLE [Concomitant]
     Active Substance: ITRACONAZOLE
     Indication: Fungal infection
     Dosage: UNK (2 ONCE DAILY FOR 7 DAYS AND REPEAT AFTER THREE WEEKS OFF MEDICATION)
     Route: 065
     Dates: start: 20240822

REACTIONS (1)
  - Ageusia [Recovering/Resolving]
